FAERS Safety Report 9572100 (Version 2)
Quarter: 2013Q4

REPORT INFORMATION
  Report Type: Spontaneous
  Country: US (occurrence: US)
  Receive Date: 20131001
  Receipt Date: 20131115
  Transmission Date: 20140711
  Serious: No
  Sender: FDA-Public Use
  Company Number: US-BIOGENIDEC-2013BI067108

PATIENT
  Age: 32 Year
  Sex: Female

DRUGS (1)
  1. TECFIDERA [Suspect]
     Indication: MULTIPLE SCLEROSIS
     Dates: start: 20130609

REACTIONS (3)
  - Dry mouth [Recovered/Resolved with Sequelae]
  - Alopecia [Not Recovered/Not Resolved]
  - Flushing [Recovered/Resolved with Sequelae]
